FAERS Safety Report 9346642 (Version 1)
Quarter: 2013Q2

REPORT INFORMATION
  Report Type: Spontaneous
  Country: US (occurrence: US)
  Receive Date: 20130613
  Receipt Date: 20130613
  Transmission Date: 20140414
  Serious: Yes (Other)
  Sender: FDA-Public Use
  Company Number: US-BAYER-2013-072180

PATIENT
  Age: 35 Year
  Sex: Female

DRUGS (8)
  1. YAZ [Suspect]
  2. GIANVI [Suspect]
  3. PEPCID [Concomitant]
  4. PROZAC [Concomitant]
  5. FAMOTIDINE [Concomitant]
     Dosage: 20 MG, UNK
  6. LORAZEPAM [Concomitant]
     Dosage: 0.5 MG, UNK
  7. AMOXILLIN [Concomitant]
     Dosage: 500 MG, UNK
  8. MARIJUANA [Concomitant]

REACTIONS (1)
  - Deep vein thrombosis [None]
